FAERS Safety Report 21564020 (Version 1)
Quarter: 2022Q4

REPORT INFORMATION
  Report Type: Spontaneous
  Country: CN (occurrence: CN)
  Receive Date: 20221108
  Receipt Date: 20221108
  Transmission Date: 20230113
  Serious: Yes (Other)
  Sender: FDA-Public Use
  Company Number: CN-BoehringerIngelheim-2022-BI-200607

PATIENT
  Sex: Male
  Weight: 60 kg

DRUGS (3)
  1. ALTEPLASE [Suspect]
     Active Substance: ALTEPLASE
     Indication: Thrombolysis
     Dosage: 40ML NORMAL SALINE + 40 MG ALTEPLASE FOR INJECTION.?4ML (10% OF TOTAL) WAS INTRAVENOUSLY INJECTED FI
     Route: 042
     Dates: start: 20220920, end: 20220920
  2. ULTRAVIST [Suspect]
     Active Substance: IOPROMIDE
     Indication: Product used for unknown indication
     Route: 042
     Dates: start: 20220920, end: 20220920
  3. SODIUM CHLORIDE [Concomitant]
     Active Substance: SODIUM CHLORIDE
     Route: 042
     Dates: start: 20220920, end: 20220920

REACTIONS (5)
  - Mental status changes [Recovering/Resolving]
  - Hypotension [Recovering/Resolving]
  - Flushing [Recovering/Resolving]
  - Tachypnoea [Recovering/Resolving]
  - Cold sweat [Recovering/Resolving]

NARRATIVE: CASE EVENT DATE: 20220920
